FAERS Safety Report 14934063 (Version 1)
Quarter: 2018Q2

REPORT INFORMATION
  Report Type: Spontaneous
  Country: DE (occurrence: DE)
  Receive Date: 20180524
  Receipt Date: 20180524
  Transmission Date: 20180711
  Serious: Yes (Other)
  Sender: FDA-Public Use
  Company Number: DE-TEVA-2018-DE-896660

PATIENT
  Age: 44 Year
  Sex: Female

DRUGS (4)
  1. MINOCYCLIN-RATIOPHARM 50 MG HARTKAPSELN [Suspect]
     Active Substance: MINOCYCLINE HYDROCHLORIDE
     Indication: NEUROBORRELIOSIS
     Dosage: TAKEN FOR YEARS, EACH TIME FOR A PERIOD OF 2-3 MONTHS, ONCE DAILY
     Route: 048
  2. MINOCYCLIN-RATIOPHARM 50 MG HARTKAPSELN [Suspect]
     Active Substance: MINOCYCLINE HYDROCHLORIDE
     Dosage: ONCE DAILY, TAKEN FOR 1 DAY
     Route: 048
     Dates: start: 20180517
  3. MINOCYCLIN-RATIOPHARM 50 MG HARTKAPSELN [Suspect]
     Active Substance: MINOCYCLINE HYDROCHLORIDE
     Dosage: ONCE DAILY, TAKEN FOR 3 DAYS
     Route: 048
     Dates: start: 201804, end: 201804
  4. PROGESTERON [Concomitant]
     Active Substance: PROGESTERONE

REACTIONS (7)
  - Erythema [Recovered/Resolved]
  - Paraesthesia oral [Not Recovered/Not Resolved]
  - Dyspepsia [Not Recovered/Not Resolved]
  - Arrhythmia [Unknown]
  - Abdominal discomfort [Not Recovered/Not Resolved]
  - Pruritus [Recovered/Resolved]
  - Oedema mucosal [Not Recovered/Not Resolved]

NARRATIVE: CASE EVENT DATE: 201804
